FAERS Safety Report 10168526 (Version 2)
Quarter: 2014Q2

REPORT INFORMATION
  Report Type: Spontaneous
  Country: IT (occurrence: IT)
  Receive Date: 20140513
  Receipt Date: 20140527
  Transmission Date: 20141212
  Serious: Yes (Death, Other)
  Sender: FDA-Public Use
  Company Number: IT-ACCORD-023526

PATIENT
  Age: 75 Year
  Sex: Male

DRUGS (3)
  1. FLUOROURACIL [Suspect]
     Indication: MALIGNANT NEOPLASM OF AMPULLA OF VATER
     Dosage: 500 MG/M2/DAY
     Route: 013
  2. GEMCITABINE/GEMCITABINE HYDROCHLORIDE [Suspect]
     Indication: MALIGNANT NEOPLASM OF AMPULLA OF VATER
     Dosage: 1000 MG/M2 FOR A 30-MIN INFUSION PERIOD.?DOSE WAS REDUCED BY 20%.
  3. CAPECITABINE [Suspect]
     Indication: MALIGNANT NEOPLASM OF AMPULLA OF VATER
     Dosage: 1500 MG/DAILY
     Route: 048

REACTIONS (12)
  - Thrombocytopenia [Unknown]
  - Anaemia [Unknown]
  - Disease progression [Fatal]
  - Off label use [Unknown]
  - Bone marrow toxicity [None]
  - Drug ineffective [None]
  - Respiratory failure [None]
  - Hepatic failure [None]
  - Malignant neoplasm of ampulla of Vater [None]
  - Malignant neoplasm progression [None]
  - Metastases to lung [None]
  - Metastases to liver [None]
